FAERS Safety Report 9226216 (Version 1)
Quarter: 2013Q2

REPORT INFORMATION
  Report Type: Spontaneous
  Country: CH (occurrence: CH)
  Receive Date: 20130411
  Receipt Date: 20130411
  Transmission Date: 20140414
  Serious: Yes (Other)
  Sender: FDA-Public Use
  Company Number: PHHY2013CH034419

PATIENT
  Age: 65 Year
  Sex: Male
  Weight: 165 kg

DRUGS (2)
  1. METFIN [Suspect]
     Indication: TYPE 2 DIABETES MELLITUS
     Dosage: 1000 MG, BID
     Route: 048
     Dates: start: 20010701, end: 20120509
  2. ANTIHYPERTENSIVES [Concomitant]

REACTIONS (2)
  - Renal failure [Recovered/Resolved]
  - Drug ineffective [Recovered/Resolved]
